FAERS Safety Report 7297668-1 (Version None)
Quarter: 2011Q1

REPORT INFORMATION
  Report Type: 
  Country: None (occurrence: None)
  Receive Date: 20110216
  Receipt Date: 20110214
  Transmission Date: 20110831
  Serious: Yes (Other)
  Sender: FDA-Public Use
  Company Number: US-AMGEN-USASP2010005086

PATIENT
  Age: 59 Year
  Sex: Male

DRUGS (1)
  1. ENBREL [Suspect]
     Indication: PSORIASIS
     Dosage: 50 MG, 2 TIMES/WK
     Dates: start: 20100817

REACTIONS (6)
  - DRY THROAT [None]
  - THROAT IRRITATION [None]
  - RHINORRHOEA [None]
  - HEADACHE [None]
  - HYPERTENSION [None]
  - NASAL CONGESTION [None]
